FAERS Safety Report 9604684 (Version 4)
Quarter: 2014Q1

REPORT INFORMATION
  Report Type: Spontaneous
  Country: US (occurrence: US)
  Receive Date: 20131008
  Receipt Date: 20140327
  Transmission Date: 20141002
  Serious: No
  Sender: FDA-Public Use
  Company Number: US-PFIZER INC-2013283822

PATIENT
  Age: 63 Year
  Sex: Male
  Weight: 77.1 kg

DRUGS (8)
  1. XALATAN [Suspect]
     Indication: GLAUCOMA
     Dosage: 1 GTT, DAILY (1 DROP IN EACH EYE DAILY)
     Route: 047
     Dates: end: 2014
  2. PRAVASTATIN SODIUM [Suspect]
     Indication: BLOOD CHOLESTEROL INCREASED
     Dosage: 40 MG, 1X/DAY
  3. AZOR [Suspect]
     Indication: HYPERTENSION
     Dosage: AMLODIPINE (10MG)/ OLMESARTAN MEDOXOMIL (40MG), 1X/DAY
  4. AZOR [Suspect]
     Indication: HYPERTENSION
  5. TIMOLOL MALEATE [Suspect]
     Dosage: UNK, 2X/DAY
  6. ALPHAGAN-P [Suspect]
     Dosage: UNK, 2X/DAY
  7. COMBIGAN [Suspect]
     Indication: GLAUCOMA
     Dosage: UNK
  8. MELOXICAM [Concomitant]
     Indication: BACK PAIN
     Dosage: 7.5 MG, AS NEEDED

REACTIONS (7)
  - Ocular hyperaemia [Unknown]
  - Fatigue [Unknown]
  - Dermatitis allergic [Unknown]
  - Rash [Unknown]
  - Skin lesion [Unknown]
  - Erythema [Unknown]
  - Pain in extremity [Unknown]
